FAERS Safety Report 5189863-2 (Version None)
Quarter: 2006Q4

REPORT INFORMATION
  Report Type: 
  Country: None (occurrence: None)
  Receive Date: 20061215
  Receipt Date: 20061206
  Transmission Date: 20070319
  Serious: Yes (Hospitalization)
  Sender: FDA-Public Use
  Company Number: 2006110642

PATIENT
  Age: 77 Year
  Sex: Male

DRUGS (4)
  1. AMLODIPINE [Suspect]
     Dosage: ORAL
     Route: 048
  2. CLARITHROMYCIN [Suspect]
     Indication: LUNG DISORDER
     Dosage: ORAL
     Route: 048
     Dates: start: 20060807, end: 20060811
  3. COZAAR [Suspect]
     Dosage: ORAL
     Route: 048
  4. ASASANTIN (ACETYLSALICYLIC ACID, DIPYRIDAMOLE) [Suspect]
     Dosage: ORAL
     Route: 048

REACTIONS (5)
  - ANXIETY [None]
  - DEPRESSION [None]
  - HALLUCINATION [None]
  - ILL-DEFINED DISORDER [None]
  - NIGHTMARE [None]
